FAERS Safety Report 6752144-7 (Version None)
Quarter: 2010Q2

REPORT INFORMATION
  Report Type: 
  Country: None (occurrence: None)
  Receive Date: 20100602
  Receipt Date: 20100518
  Transmission Date: 20101027
  Serious: Yes (Hospitalization, Disabling)
  Sender: FDA-Public Use
  Company Number: BE-GENENTECH-301989

PATIENT
  Age: 79 Year
  Sex: Female

DRUGS (3)
  1. LUCENTIS [Suspect]
     Indication: MACULAR DEGENERATION
     Dosage: UNK
     Route: 031
     Dates: start: 20091109
  2. TENORMIN [Concomitant]
     Indication: DRUG USE FOR UNKNOWN INDICATION
  3. MACUGEN [Concomitant]
     Indication: DRUG USE FOR UNKNOWN INDICATION
     Dosage: UNK
     Dates: start: 20100324

REACTIONS (1)
  - CEREBROVASCULAR ACCIDENT [None]
